FAERS Safety Report 7770402-4 (Version None)
Quarter: 2011Q3

REPORT INFORMATION
  Report Type: 
  Country: None (occurrence: None)
  Receive Date: 20110922
  Receipt Date: 20100817
  Transmission Date: 20111222
  Serious: No
  Sender: FDA-Public Use
  Company Number: US-ASTRAZENECA-2010SE38588

PATIENT
  Age: 53 Year
  Sex: Female
  Weight: 77.1 kg

DRUGS (4)
  1. SEROQUEL [Suspect]
     Indication: BIPOLAR DISORDER
     Route: 048
  2. AMITRIPTYLINE HCL [Concomitant]
  3. TEMAZEPAM [Concomitant]
  4. HYDROXYZINE PAM [Concomitant]

REACTIONS (6)
  - ARTHRALGIA [None]
  - WEIGHT INCREASED [None]
  - DRUG DOSE OMISSION [None]
  - FALL [None]
  - WRONG TECHNIQUE IN DRUG USAGE PROCESS [None]
  - SLEEP TERROR [None]
